FAERS Safety Report 6109975-6 (Version None)
Quarter: 2009Q1

REPORT INFORMATION
  Report Type: 
  Country: None (occurrence: None)
  Receive Date: 20090310
  Receipt Date: 20081117
  Transmission Date: 20090719
  Serious: No
  Sender: FDA-Public Use
  Company Number: A0752576A

PATIENT
  Age: 51 Year
  Sex: Female

DRUGS (1)
  1. NICORETTE [Suspect]

REACTIONS (4)
  - ALOPECIA [None]
  - HAIR GROWTH ABNORMAL [None]
  - INTENTIONAL DRUG MISUSE [None]
  - STOMATITIS [None]
